FAERS Safety Report 25103561 (Version 1)
Quarter: 2025Q1

REPORT INFORMATION
  Report Type: Spontaneous
  Country: VN (occurrence: VN)
  Receive Date: 20250321
  Receipt Date: 20250321
  Transmission Date: 20250409
  Serious: Yes (Hospitalization, Other)
  Sender: AUROBINDO
  Company Number: VN-AUROBINDO-AUR-APL-2025-014826

PATIENT
  Age: 24 Day
  Sex: Male
  Weight: 3.4 kg

DRUGS (2)
  1. MEROPENEM [Suspect]
     Active Substance: MEROPENEM
     Indication: Rash vesicular
     Route: 065
  2. VANCOMYCIN [Suspect]
     Active Substance: VANCOMYCIN
     Indication: Rash vesicular
     Route: 065

REACTIONS (1)
  - Drug ineffective [Unknown]
